FAERS Safety Report 4494940-5 (Version None)
Quarter: 2004Q4

REPORT INFORMATION
  Report Type: 
  Country: None (occurrence: None)
  Receive Date: 20041104
  Receipt Date: 20041104
  Transmission Date: 20050328
  Serious: Yes (Life-Threatening, Other)
  Sender: FDA-Public Use
  Company Number: None

PATIENT
  Age: 42 Year
  Sex: Male
  Weight: 73.9363 kg

DRUGS (1)
  1. ASPIRIN [Suspect]
     Dosage: 1- HOUR

REACTIONS (1)
  - LOSS OF CONSCIOUSNESS [None]
